FAERS Safety Report 5495302-4 (Version None)
Quarter: 2007Q4

REPORT INFORMATION
  Report Type: 
  Country: None (occurrence: None)
  Receive Date: 20071024
  Receipt Date: 20071012
  Transmission Date: 20080405
  Serious: Yes (Hospitalization, Other)
  Sender: FDA-Public Use
  Company Number: JP-PFIZER INC-2007079902

PATIENT
  Age: 54 Year
  Sex: Female

DRUGS (1)
  1. UNASYN [Suspect]
     Indication: PNEUMONIA
     Route: 042

REACTIONS (2)
  - DRUG INEFFECTIVE [None]
  - EOSINOPHILIC PNEUMONIA [None]
